FAERS Safety Report 5558207-6 (Version None)
Quarter: 2007Q4

REPORT INFORMATION
  Report Type: 
  Country: None (occurrence: None)
  Receive Date: 20071214
  Receipt Date: 20071205
  Transmission Date: 20080405
  Serious: Yes (Other)
  Sender: FDA-Public Use
  Company Number: US-PFIZER INC-2007080136

PATIENT
  Age: 63 Year
  Sex: Male
  Weight: 108.9 kg

DRUGS (5)
  1. GEODON [Suspect]
     Indication: BIPOLAR I DISORDER
  2. LITHIUM CARBONATE [Concomitant]
  3. ABILIFY [Concomitant]
  4. WELLBUTRIN [Concomitant]
  5. TEGRETOL [Concomitant]

REACTIONS (4)
  - AKATHISIA [None]
  - ANXIETY [None]
  - BIPOLAR I DISORDER [None]
  - SOMNOLENCE [None]
